FAERS Safety Report 8387939-X (Version None)
Quarter: 2012Q2

REPORT INFORMATION
  Report Type: 
  Country: None (occurrence: None)
  Receive Date: 20120525
  Receipt Date: 20120517
  Transmission Date: 20120825
  Serious: Yes (Hospitalization, Other)
  Sender: FDA-Public Use
  Company Number: US-MERCK-1202USA03899

PATIENT
  Age: 66 Year
  Sex: Female

DRUGS (5)
  1. FOSAMAX [Suspect]
     Indication: OSTEOPOROSIS
     Route: 048
     Dates: start: 20000101, end: 20100101
  2. ONE-A-DAY ESSENTIAL VITAMINS [Concomitant]
     Route: 048
  3. CORTICOSTEROIDS (UNSPECIFIED) [Concomitant]
     Route: 065
     Dates: start: 19710101, end: 20120101
  4. CALCIUM (UNSPECIFIED) [Concomitant]
     Route: 048
  5. HORMONES (UNSPECIFIED) [Concomitant]
     Route: 065
     Dates: start: 19800101, end: 20020101

REACTIONS (7)
  - SKIN CANCER [None]
  - BLOOD CHOLESTEROL INCREASED [None]
  - LOW TURNOVER OSTEOPATHY [None]
  - FEMUR FRACTURE [None]
  - DEVICE FAILURE [None]
  - TEETH BRITTLE [None]
  - CHEST PAIN [None]
